FAERS Safety Report 4959015-7 (Version None)
Quarter: 2006Q1

REPORT INFORMATION
  Report Type: 
  Country: None (occurrence: None)
  Receive Date: 20060324
  Receipt Date: 20060313
  Transmission Date: 20060701
  Serious: Yes (Hospitalization)
  Sender: FDA-Public Use
  Company Number: GXKR2006US01472

PATIENT
  Age: 75 Year
  Sex: Female

DRUGS (5)
  1. AZITHROMYCIN [Suspect]
     Indication: UPPER RESPIRATORY TRACT INFECTION
     Dosage: 500 MG, QD, ORAL
     Route: 048
  2. ALPRAZOLAM [Suspect]
  3. LISINOPRIL AND HYDROCHLOROTHIAZIDE [Suspect]
  4. TENORMIN [Suspect]
  5. LEVOTHYROXINE SODIUM [Concomitant]

REACTIONS (7)
  - CHOLELITHIASIS [None]
  - DIARRHOEA [None]
  - GALLBLADDER DISORDER [None]
  - HEPATIC NECROSIS [None]
  - HEPATITIS [None]
  - HEPATOTOXICITY [None]
  - RENAL IMPAIRMENT [None]
